FAERS Safety Report 20693665 (Version 1)
Quarter: 2022Q2

REPORT INFORMATION
  Report Type: Report from Study
  Country: US (occurrence: US)
  Receive Date: 20220411
  Receipt Date: 20220411
  Transmission Date: 20220721
  Serious: Yes (Hospitalization, Other)
  Sender: FDA-Public Use
  Company Number: US-CELGENE-USA-20220206769

PATIENT
  Age: 67 Year
  Sex: Male
  Weight: 83.91 kg

DRUGS (1)
  1. POMALYST [Suspect]
     Active Substance: POMALIDOMIDE
     Indication: Plasma cell myeloma
     Dosage: 4 MILLIGRAM, ADDITIONAL EXPIRY DATE 31-JAN-2025.
     Route: 048
     Dates: start: 202105

REACTIONS (3)
  - Iron deficiency [Unknown]
  - COVID-19 [Unknown]
  - Pneumonia [Unknown]
